FAERS Safety Report 26181251 (Version 1)
Quarter: 2025Q4

REPORT INFORMATION
  Report Type: Report from Study
  Country: EU (occurrence: EU)
  Receive Date: 20251221
  Receipt Date: 20251221
  Transmission Date: 20260118
  Serious: Yes (Hospitalization)
  Sender: DUCHESNAY
  Company Number: EU-EXELTIS PHARMACEUTICAL HOLDING, S.L.-2512FR10178

PATIENT

DRUGS (2)
  1. DOXYLAMINE SUCCINATE\PYRIDOXINE HYDROCHLORIDE [Suspect]
     Active Substance: DOXYLAMINE SUCCINATE\PYRIDOXINE HYDROCHLORIDE
     Indication: Morning sickness
     Dosage: ^USUAL POSOLOGY^
     Route: 048
  2. DOXYLAMINE SUCCINATE\PYRIDOXINE HYDROCHLORIDE [Suspect]
     Active Substance: DOXYLAMINE SUCCINATE\PYRIDOXINE HYDROCHLORIDE
     Indication: Morning sickness

REACTIONS (3)
  - Vomiting [Unknown]
  - Weight decreased [Unknown]
  - Drug ineffective [Unknown]
